FAERS Safety Report 17191360 (Version 1)
Quarter: 2019Q4

REPORT INFORMATION
  Report Type: Spontaneous
  Country: GB (occurrence: GB)
  Receive Date: 20191223
  Receipt Date: 20191223
  Transmission Date: 20200122
  Serious: Yes (Other)
  Sender: FDA-Public Use
  Company Number: GB-TEVA-2019-GB-1155086

PATIENT
  Age: 29 Year
  Sex: Male
  Weight: 67.5 kg

DRUGS (10)
  1. TURMERIC [Suspect]
     Active Substance: HERBALS\TURMERIC
     Route: 065
  2. OXITRIPTAN [Suspect]
     Active Substance: OXITRIPTAN
     Route: 065
  3. CHLORELLA [Suspect]
     Active Substance: DIETARY SUPPLEMENT
     Route: 065
  4. ARIPIPRAZOLE. [Suspect]
     Active Substance: ARIPIPRAZOLE
     Indication: PSYCHOTIC DISORDER
     Dosage: 10 MG
     Route: 048
     Dates: start: 20191019, end: 20191106
  5. MUCUNA PRURIENS [Suspect]
     Active Substance: HERBALS
     Route: 065
  6. CANNABIDIOL [Suspect]
     Active Substance: CANNABIDIOL
     Route: 065
  7. MAGNESIUM [Suspect]
     Active Substance: MAGNESIUM
     Route: 065
  8. THEOBROMA CACAO [Suspect]
     Active Substance: COCOA
     Route: 065
  9. PSILOCYBINE [Suspect]
     Active Substance: PSILOCYBINE
     Route: 065
  10. BENZODIAZEPINE [Concomitant]
     Active Substance: BENZODIAZEPINE

REACTIONS (6)
  - Mental impairment [Recovering/Resolving]
  - Serotonin syndrome [Recovering/Resolving]
  - Mydriasis [Recovering/Resolving]
  - Tachycardia [Recovering/Resolving]
  - Bradyphrenia [Recovering/Resolving]
  - Potentiating drug interaction [Unknown]

NARRATIVE: CASE EVENT DATE: 20191101
